FAERS Safety Report 5696133-2 (Version None)
Quarter: 2008Q2

REPORT INFORMATION
  Report Type: 
  Country: None (occurrence: None)
  Receive Date: 20080407
  Receipt Date: 20080402
  Transmission Date: 20081010
  Serious: Yes (Hospitalization)
  Sender: FDA-Public Use
  Company Number: FR-BRISTOL-MYERS SQUIBB COMPANY-14136337

PATIENT
  Age: 33 Year
  Sex: Male

DRUGS (5)
  1. SUSTIVA [Suspect]
     Indication: HIV INFECTION
  2. PREZISTA [Suspect]
     Indication: HIV INFECTION
  3. NORVIR [Suspect]
     Indication: HIV INFECTION
  4. TRUVADA [Suspect]
     Indication: HIV INFECTION
  5. ISENTRESS [Suspect]
     Indication: HIV INFECTION

REACTIONS (6)
  - ABDOMINAL PAIN LOWER [None]
  - ABDOMINAL PAIN UPPER [None]
  - ALANINE AMINOTRANSFERASE DECREASED [None]
  - ASTHENIA [None]
  - GENITAL PAIN [None]
  - HAEMATOMA [None]
